FAERS Safety Report 21021627 (Version 1)
Quarter: 2022Q2

REPORT INFORMATION
  Report Type: Spontaneous
  Country: US (occurrence: None)
  Receive Date: 20220628
  Receipt Date: 20220628
  Transmission Date: 20220720
  Serious: Yes (Hospitalization)
  Sender: FDA-Public Use
  Company Number: None

PATIENT
  Age: 80 Year
  Sex: Male

DRUGS (13)
  1. SILDENAFIL [Suspect]
     Active Substance: SILDENAFIL
  2. ACYCLOVIR [Concomitant]
  3. BUMETANIDE [Concomitant]
     Active Substance: BUMETANIDE
  4. CLOPIDOGREL [Concomitant]
     Active Substance: CLOPIDOGREL BISULFATE
  5. COLCHICINE [Concomitant]
     Active Substance: COLCHICINE
  6. ESCITALOPRAM [Concomitant]
     Active Substance: ESCITALOPRAM OXALATE
  7. FUROSEMIDE [Concomitant]
     Active Substance: FUROSEMIDE
  8. METOPROL TAR TAB [Concomitant]
  9. OXYBUTYNIN [Concomitant]
     Active Substance: OXYBUTYNIN
  10. SILDENAFIL [Concomitant]
     Active Substance: SILDENAFIL
  11. SIROLIMUS [Concomitant]
     Active Substance: SIROLIMUS
  12. TACROLIMUS [Concomitant]
     Active Substance: TACROLIMUS
  13. XIFAXAN [Concomitant]
     Active Substance: RIFAXIMIN

REACTIONS (2)
  - Hospitalisation [None]
  - Therapy interrupted [None]

NARRATIVE: CASE EVENT DATE: 20220610
